FAERS Safety Report 10238794 (Version 1)
Quarter: 2014Q2

REPORT INFORMATION
  Report Type: Spontaneous
  Country: US (occurrence: US)
  Receive Date: 20140616
  Receipt Date: 20140616
  Transmission Date: 20141212
  Serious: Yes (Hospitalization)
  Sender: FDA-Public Use
  Company Number: US-BAYER-2014-089433

PATIENT
  Age: 19 Year
  Sex: Female
  Weight: 68 kg

DRUGS (9)
  1. YAZ [Suspect]
     Indication: MENORRHAGIA
  2. YAZ [Suspect]
     Indication: ANAEMIA
  3. GIANVI [Suspect]
     Indication: MENORRHAGIA
  4. GIANVI [Suspect]
     Indication: ANAEMIA
  5. CITALOPRAM [Concomitant]
     Indication: ANXIETY
     Dosage: 20 MG, UNK
  6. PRENATAL VITAMINS [Concomitant]
  7. TYLENOL [PARACETAMOL] [Concomitant]
  8. OXYCODONE [Concomitant]
  9. DILAUDID [Concomitant]

REACTIONS (1)
  - Pulmonary embolism [None]
